FAERS Safety Report 18505181 (Version 1)
Quarter: 2020Q4

REPORT INFORMATION
  Report Type: Spontaneous
  Country: MX (occurrence: MX)
  Receive Date: 20201116
  Receipt Date: 20201116
  Transmission Date: 20210114
  Serious: Yes (Hospitalization, Other)
  Sender: FDA-Public Use
  Company Number: MX-ROCHE-2713167

PATIENT
  Age: 41 Year
  Sex: Male

DRUGS (2)
  1. ALECTINIB. [Suspect]
     Active Substance: ALECTINIB
     Indication: NON-SMALL CELL LUNG CANCER
     Route: 048
     Dates: start: 20191121
  2. DENOSUMAB [Concomitant]
     Active Substance: DENOSUMAB
     Route: 058
     Dates: start: 20191121

REACTIONS (8)
  - Pericardial effusion [Unknown]
  - Pyrexia [Unknown]
  - Respiratory disorder [Unknown]
  - Dependence on oxygen therapy [Unknown]
  - Pleural effusion [Unknown]
  - Neoplasm [Unknown]
  - Systemic inflammatory response syndrome [Unknown]
  - Dyspnoea [Unknown]

NARRATIVE: CASE EVENT DATE: 20191205
